FAERS Safety Report 13533090 (Version 1)
Quarter: 2017Q2

REPORT INFORMATION
  Report Type: Spontaneous
  Country: AT (occurrence: AT)
  Receive Date: 20170510
  Receipt Date: 20170510
  Transmission Date: 20170830
  Serious: Yes (Other)
  Sender: FDA-Public Use
  Company Number: AT-ASTRAZENECA-2017SE47390

PATIENT
  Sex: Female
  Weight: 54 kg

DRUGS (1)
  1. IRESSA [Suspect]
     Active Substance: GEFITINIB
     Route: 048

REACTIONS (4)
  - Weight decreased [Unknown]
  - Blood pressure decreased [Unknown]
  - Metastases to liver [Unknown]
  - Metastases to kidney [Unknown]
